FAERS Safety Report 7572138-1 (Version None)
Quarter: 2011Q2

REPORT INFORMATION
  Report Type: 
  Country: None (occurrence: None)
  Receive Date: 20110624
  Receipt Date: 20110613
  Transmission Date: 20111010
  Serious: Yes (Other)
  Sender: FDA-Public Use
  Company Number: US-AMGEN-USASP2011030261

PATIENT
  Age: 34 Year
  Sex: Female
  Weight: 102.95 kg

DRUGS (6)
  1. DEPAKOTE [Concomitant]
     Dosage: UNK UNK, BID
  2. PRILOSEC [Concomitant]
  3. ENBREL [Suspect]
     Indication: PSORIATIC ARTHROPATHY
     Dosage: 50 MG, QWK
     Route: 058
     Dates: start: 20110505, end: 20110519
  4. ACTIPROFEN [Concomitant]
     Dosage: UNK UNK, PRN
  5. WELLBUTRIN [Concomitant]
     Dosage: 150 MG, BID
  6. ENBREL [Suspect]
     Indication: PSORIASIS

REACTIONS (7)
  - INJECTION SITE REACTION [None]
  - CHEST PAIN [None]
  - HAEMATOCRIT DECREASED [None]
  - DYSPNOEA [None]
  - PALPITATIONS [None]
  - HAEMOGLOBIN DECREASED [None]
  - LUPUS-LIKE SYNDROME [None]
